FAERS Safety Report 15073082 (Version 1)
Quarter: 2018Q2

REPORT INFORMATION
  Report Type: Spontaneous
  Country: US (occurrence: US)
  Receive Date: 20180627
  Receipt Date: 20180627
  Transmission Date: 20180711
  Serious: No
  Sender: FDA-Public Use
  Company Number: US-TEVA-2018-US-912441

PATIENT
  Sex: Female

DRUGS (1)
  1. LORAZEPAM. [Suspect]
     Active Substance: LORAZEPAM
     Indication: PANIC ATTACK
     Dosage: 2 MG EVERY FOUR HOURS BUT WAS DECREASED TO 2 MG EVERY SIX HOURS
     Route: 065
     Dates: start: 2008

REACTIONS (3)
  - Product label issue [Unknown]
  - Drug prescribing error [Unknown]
  - Terminal insomnia [Unknown]

NARRATIVE: CASE EVENT DATE: 2008
